FAERS Safety Report 18870387 (Version 3)
Quarter: 2021Q2

REPORT INFORMATION
  Report Type: Report from Study
  Country: CN (occurrence: CN)
  Receive Date: 20210209
  Receipt Date: 20210622
  Transmission Date: 20210717
  Serious: Yes (Hospitalization)
  Sender: FDA-Public Use
  Company Number: CN-GILEAD-2021-0515844

PATIENT
  Sex: Male
  Weight: 62 kg

DRUGS (11)
  1. CARROLE HUANG SODIUM [Concomitant]
  2. EPLAZOLE SODIUM [Concomitant]
  3. SULFASUCCINAMIDE [Concomitant]
  4. ELVITEGRAVIR/COBICISTAT/EMTRICITABINE/TENOFOVIR ALAFENAMIDE [Suspect]
     Active Substance: COBICISTAT\ELVITEGRAVIR\EMTRICITABINE\TENOFOVIR
     Indication: HIV INFECTION
     Dosage: 1 DOSAGE FORM, QD
     Route: 048
     Dates: start: 20201229, end: 20210115
  5. PITUITARINE [Concomitant]
  6. ORNITHINE ASPARTATE [Concomitant]
     Active Substance: ORNITHINE ASPARTATE
  7. SOMATOSTATIN [Concomitant]
     Active Substance: SOMATOSTATIN
  8. JIE FU KANG [Concomitant]
     Dosage: UNK
     Dates: end: 20210112
  9. SHUGANING [Concomitant]
  10. HEPARIN SODIUM. [Concomitant]
     Active Substance: HEPARIN SODIUM
  11. DOPAMINE HYDROCHLORIDE. [Concomitant]
     Active Substance: DOPAMINE HYDROCHLORIDE

REACTIONS (1)
  - Hepatic function abnormal [Not Recovered/Not Resolved]

NARRATIVE: CASE EVENT DATE: 20210125
